FAERS Safety Report 7248489-7 (Version None)
Quarter: 2011Q1

REPORT INFORMATION
  Report Type: 
  Country: None (occurrence: None)
  Receive Date: 20110127
  Receipt Date: 20110124
  Transmission Date: 20110831
  Serious: Yes (Other)
  Sender: FDA-Public Use
  Company Number: AU-RB-021203-11

PATIENT
  Sex: Male

DRUGS (5)
  1. SUBOXONE [Suspect]
     Indication: PRODUCT USED FOR UNKNOWN INDICATION
     Dosage: DOSING DETAILS UNKNOWN. CONSUMER TOOK A FEW TABLETS ^HERE AND THERE^.
     Route: 065
     Dates: start: 20100101
  2. SUBUTEX [Suspect]
     Indication: PRODUCT USED FOR UNKNOWN INDICATION
     Dosage: DOSING DETAILS UNKNOWN.
     Route: 060
  3. SUBUTEX [Suspect]
     Route: 065
     Dates: start: 20100428
  4. SUBOXONE [Suspect]
     Dosage: FREQUENCY UNKNOWN.
     Route: 065
     Dates: end: 20100301
  5. CLOPIDOGREL [Concomitant]
     Indication: PRODUCT USED FOR UNKNOWN INDICATION
     Route: 065

REACTIONS (3)
  - EMOTIONAL DISORDER [None]
  - MYOCARDIAL INFARCTION [None]
  - CHEST PAIN [None]
